FAERS Safety Report 6538427-4 (Version None)
Quarter: 2010Q1

REPORT INFORMATION
  Report Type: 
  Country: None (occurrence: None)
  Receive Date: 20100114
  Receipt Date: 20091104
  Transmission Date: 20100710
  Serious: No
  Sender: FDA-Public Use
  Company Number: US-TYCO HEALTHCARE/MALLINCKRODT-T200902032

PATIENT
  Sex: Female

DRUGS (3)
  1. OXYCODONE HCL AND ACETAMINOPHEN [Suspect]
     Indication: ARTHRALGIA
     Dosage: 325 MG, UNK
     Route: 048
     Dates: start: 20090101
  2. OXYCODONE HCL AND ACETAMINOPHEN [Suspect]
     Dosage: ONE OR TWO EVERY SIX HOURS
     Route: 048
     Dates: start: 20090101
  3. OTHER ANTIHYPERTENSIVES [Concomitant]

REACTIONS (2)
  - BACK PAIN [None]
  - DRUG INEFFECTIVE [None]
